FAERS Safety Report 22082968 (Version 3)
Quarter: 2023Q2

REPORT INFORMATION
  Report Type: Spontaneous
  Country: US (occurrence: US)
  Receive Date: 20230310
  Receipt Date: 20230511
  Transmission Date: 20230721
  Serious: Yes (Hospitalization, Other)
  Sender: FDA-Public Use
  Company Number: US-BRISTOL-MYERS SQUIBB COMPANY-2023-032980

PATIENT
  Age: 64 Year
  Sex: Female
  Weight: 56.7 kg

DRUGS (8)
  1. ELIQUIS [Suspect]
     Active Substance: APIXABAN
     Indication: Embolism venous
     Route: 048
  2. PENTOXIFILLENE [Concomitant]
     Indication: Autonomic nervous system imbalance
     Dosage: ONGOING
     Route: 048
     Dates: start: 1996
  3. GABAPENTIN [Concomitant]
     Active Substance: GABAPENTIN
     Indication: Autonomic nervous system imbalance
     Dosage: ONGOING
     Route: 048
     Dates: start: 1996
  4. DONNATAL [Concomitant]
     Active Substance: ATROPINE SULFATE\HYOSCYAMINE SULFATE\PHENOBARBITAL\SCOPOLAMINE HYDROBROMIDE
     Indication: Autonomic nervous system imbalance
     Dosage: ONGOING
     Route: 048
     Dates: start: 1996
  5. CLONAZEPAM [Concomitant]
     Active Substance: CLONAZEPAM
     Indication: Autonomic nervous system imbalance
     Dosage: ONGOING
     Route: 048
     Dates: start: 1996
  6. CITALOPRAM [Concomitant]
     Active Substance: CITALOPRAM HYDROBROMIDE
     Indication: Autonomic nervous system imbalance
     Dosage: ONGOING
     Route: 048
     Dates: start: 1996
  7. ASPIRIN [Concomitant]
     Active Substance: ASPIRIN
     Indication: Product used for unknown indication
  8. FAMOTIDINE [Concomitant]
     Active Substance: FAMOTIDINE
     Indication: Product used for unknown indication

REACTIONS (7)
  - Feeling abnormal [Unknown]
  - Malaise [Unknown]
  - Headache [Unknown]
  - Hypotension [Unknown]
  - Anxiety [Unknown]
  - Bradycardia [Unknown]
  - Exercise tolerance decreased [Unknown]

NARRATIVE: CASE EVENT DATE: 20210701
